FAERS Safety Report 5958595-2 (Version None)
Quarter: 2008Q4

REPORT INFORMATION
  Report Type: 
  Country: None (occurrence: None)
  Receive Date: 20081119
  Receipt Date: 20081110
  Transmission Date: 20090506
  Serious: Yes (Hospitalization)
  Sender: FDA-Public Use
  Company Number: IT-PFIZER INC-2008075490

PATIENT
  Sex: Female
  Weight: 41 kg

DRUGS (9)
  1. SU-011,248 [Suspect]
     Indication: BREAST CANCER METASTATIC
     Route: 048
     Dates: start: 20080703, end: 20080822
  2. NORVASC [Concomitant]
     Route: 048
     Dates: start: 20020101
  3. TRIATEC [Concomitant]
     Route: 048
     Dates: start: 20080823
  4. LIMPIDEX [Concomitant]
     Route: 048
     Dates: start: 20080823
  5. FOLINA [Concomitant]
     Route: 048
     Dates: start: 20080828
  6. CRESTOR [Concomitant]
     Route: 048
     Dates: start: 20080828, end: 20080828
  7. UGUROL [Concomitant]
     Route: 042
     Dates: start: 20080822, end: 20080828
  8. IGROSELES [Concomitant]
     Route: 048
     Dates: start: 20020101, end: 20080823
  9. ESOMEPRAZOLE MAGNESIUM [Concomitant]
     Route: 048
     Dates: start: 20080101, end: 20080823

REACTIONS (3)
  - ABDOMINAL DISTENSION [None]
  - EPISTAXIS [None]
  - HYPERTENSION [None]
